FAERS Safety Report 25105810 (Version 1)
Quarter: 2025Q1

REPORT INFORMATION
  Report Type: Spontaneous
  Country: US (occurrence: US)
  Receive Date: 20250321
  Receipt Date: 20250321
  Transmission Date: 20250409
  Serious: No
  Sender: BRAEBURN PHARMACEUTICALS
  Company Number: US-BRAEBURN-US-BRA-25-000031

PATIENT
  Age: 28 Year
  Sex: Male

DRUGS (2)
  1. BRIXADI [Suspect]
     Active Substance: BUPRENORPHINE
     Indication: Drug dependence
     Dosage: 64 MILLIGRAM, EVERY 21 DAYS
     Route: 058
     Dates: start: 202403
  2. BRIXADI [Suspect]
     Active Substance: BUPRENORPHINE
     Dosage: UNK, WEEKLY
     Route: 058

REACTIONS (3)
  - Brain fog [Unknown]
  - Nausea [Unknown]
  - Off label use [Unknown]

NARRATIVE: CASE EVENT DATE: 20240301
